FAERS Safety Report 9708095 (Version 1)
Quarter: 2013Q4

REPORT INFORMATION
  Report Type: Spontaneous
  Country: US (occurrence: US)
  Receive Date: 20131125
  Receipt Date: 20131125
  Transmission Date: 20140711
  Serious: No
  Sender: FDA-Public Use
  Company Number: US-009507513-1311USA007936

PATIENT
  Sex: Male

DRUGS (2)
  1. CLARITIN [Suspect]
     Indication: SNEEZING
     Dosage: 20 MG, UNKNOWN
     Route: 048
  2. CLARITIN [Suspect]
     Dosage: UNK, UNKNOWN
     Route: 048
     Dates: start: 20130812

REACTIONS (2)
  - Overdose [Unknown]
  - Drug ineffective [Unknown]
